FAERS Safety Report 9276904 (Version 1)
Quarter: 2013Q2

REPORT INFORMATION
  Report Type: Spontaneous
  Country: FR (occurrence: FR)
  Receive Date: 20130507
  Receipt Date: 20130507
  Transmission Date: 20140414
  Serious: Yes (Hospitalization, Other)
  Sender: FDA-Public Use
  Company Number: FR-PFIZER INC-2013137916

PATIENT
  Age: 43 Year
  Sex: Female

DRUGS (3)
  1. EFFEXOR LP [Suspect]
     Indication: DEPRESSION
     Dosage: 75 MG, 2X/DAY
     Route: 048
  2. XANAX [Suspect]
     Dosage: UNK
     Route: 048
  3. TERCIAN [Suspect]
     Dosage: UNK
     Route: 048

REACTIONS (6)
  - Overdose [Unknown]
  - Toxicity to various agents [Recovered/Resolved]
  - Fall [Recovered/Resolved]
  - Somnolence [Recovered/Resolved]
  - Limb injury [Unknown]
  - Face injury [Unknown]
